FAERS Safety Report 18431636 (Version 1)
Quarter: 2020Q4

REPORT INFORMATION
  Report Type: Spontaneous
  Country: US (occurrence: US)
  Receive Date: 20201027
  Receipt Date: 20201027
  Transmission Date: 20210114
  Serious: Yes (Hospitalization)
  Sender: FDA-Public Use
  Company Number: None

PATIENT
  Age: 41 Year
  Sex: Female
  Weight: 76.5 kg

DRUGS (5)
  1. MULTI COMPLEX VITAMIN B [Concomitant]
  2. VITAMIN D [Concomitant]
     Active Substance: VITAMIN D NOS
  3. IRON [Concomitant]
     Active Substance: IRON
  4. GLUCOSAMINE [Concomitant]
     Active Substance: GLUCOSAMINE
  5. METRONIDAZOLE. [Suspect]
     Active Substance: METRONIDAZOLE
     Indication: BACTERIAL VAGINOSIS
     Dates: start: 20201010, end: 20201015

REACTIONS (3)
  - Dyspepsia [None]
  - Pain [None]
  - Pancreatitis [None]

NARRATIVE: CASE EVENT DATE: 20201015
